FAERS Safety Report 10055694 (Version 1)
Quarter: 2014Q2

REPORT INFORMATION
  Report Type: Spontaneous
  Country: US (occurrence: None)
  Receive Date: 20140402
  Receipt Date: 20140402
  Transmission Date: 20141212
  Serious: Yes (Disabling, Other)
  Sender: FDA-Public Use
  Company Number: None

PATIENT
  Age: 68 Year
  Sex: Male
  Weight: 72.58 kg

DRUGS (1)
  1. REGLAN [Suspect]
     Indication: IMPAIRED GASTRIC EMPTYING
     Dosage: 5 G - 3 X PER DAY, THREE TIMES DAILY, TAKEN BY MOUTH
     Dates: start: 20120701, end: 20130701

REACTIONS (4)
  - Confusional state [None]
  - Amnesia [None]
  - Asthenia [None]
  - Tardive dyskinesia [None]
